FAERS Safety Report 7388808-4 (Version None)
Quarter: 2011Q2

REPORT INFORMATION
  Report Type: 
  Country: None (occurrence: None)
  Receive Date: 20110401
  Receipt Date: 20110323
  Transmission Date: 20111010
  Serious: Yes (Other)
  Sender: FDA-Public Use
  Company Number: ZA-JNJFOC-20110311071

PATIENT
  Age: 70 Year
  Sex: Female

DRUGS (5)
  1. LIPITOR [Concomitant]
     Route: 065
  2. RISPERDAL [Suspect]
     Indication: AGGRESSION
     Route: 048
  3. RISPERDAL [Suspect]
     Dosage: 0.25MG AT NIGHT
     Route: 048
  4. LANTUS [Concomitant]
     Indication: DIABETES MELLITUS
     Route: 065
  5. PREXUM [Concomitant]
     Indication: HYPERTENSION
     Route: 065

REACTIONS (3)
  - CONVULSION [None]
  - AGGRESSION [None]
  - HEPATITIS ALCOHOLIC [None]
